FAERS Safety Report 21686893 (Version 1)
Quarter: 2022Q4

REPORT INFORMATION
  Report Type: Other
  Country: NO (occurrence: None)
  Receive Date: 20221206
  Receipt Date: 20221206
  Transmission Date: 20230113
  Serious: Yes (Death, Other)
  Sender: FDA-Public Use
  Company Number: NO-ROCHE-3229483

PATIENT
  Age: 34 Year
  Sex: Male

DRUGS (14)
  1. MYCOPHENOLATE MOFETIL [Suspect]
     Active Substance: MYCOPHENOLATE MOFETIL
     Indication: Toxic epidermal necrolysis
     Route: 065
  2. METHYLPREDNISOLONE [Suspect]
     Active Substance: METHYLPREDNISOLONE
     Indication: Toxic epidermal necrolysis
     Dosage: DAY
     Route: 042
  3. METHYLPREDNISOLONE [Suspect]
     Active Substance: METHYLPREDNISOLONE
     Route: 042
  4. CYCLOSPORINE [Suspect]
     Active Substance: CYCLOSPORINE
     Indication: Toxic epidermal necrolysis
     Route: 065
  5. AMDINOCILLIN PIVOXIL [Concomitant]
     Active Substance: AMDINOCILLIN PIVOXIL
  6. PIPERACILLIN SODIUM\TAZOBACTAM SODIUM [Concomitant]
     Active Substance: PIPERACILLIN SODIUM\TAZOBACTAM SODIUM
  7. CHLORAMPHENICOL [Concomitant]
     Active Substance: CHLORAMPHENICOL
  8. PREDNISOLONE [Concomitant]
     Active Substance: PREDNISOLONE
  9. VANCOMYCIN [Concomitant]
     Active Substance: VANCOMYCIN
  10. FLUCONAZOLE [Concomitant]
     Active Substance: FLUCONAZOLE
  11. GENTAMICIN [Concomitant]
     Active Substance: GENTAMICIN
  12. CLINDAMYCIN [Concomitant]
     Active Substance: CLINDAMYCIN
  13. CIPROFLOXACIN [Concomitant]
     Active Substance: CIPROFLOXACIN
  14. MEROPENEM [Concomitant]
     Active Substance: MEROPENEM

REACTIONS (3)
  - Disease progression [Fatal]
  - Neutropenic infection [Unknown]
  - Cytomegalovirus infection [Unknown]
